APPROVED DRUG PRODUCT: LAMOTRIGINE
Active Ingredient: LAMOTRIGINE
Strength: 25MG
Dosage Form/Route: TABLET;ORAL
Application: A078982 | Product #001
Applicant: GRANULES INDIA LTD
Approved: Jan 27, 2009 | RLD: No | RS: No | Type: DISCN